FAERS Safety Report 7446099-X (Version None)
Quarter: 2011Q2

REPORT INFORMATION
  Report Type: 
  Country: None (occurrence: None)
  Receive Date: 20110429
  Receipt Date: 20110426
  Transmission Date: 20111010
  Serious: Yes (Hospitalization)
  Sender: FDA-Public Use
  Company Number: A0804415A

PATIENT
  Age: 47 Year
  Sex: Male
  Weight: 104.5 kg

DRUGS (7)
  1. LISINOPRIL [Concomitant]
  2. METOPROLOL [Concomitant]
  3. IRBESARTAN [Concomitant]
  4. FELODIPINE [Concomitant]
  5. AVANDIA [Suspect]
     Indication: DIABETES MELLITUS
     Dosage: 8MG PER DAY
     Route: 048
     Dates: start: 20010729, end: 20070414
  6. SIMVASTATIN [Concomitant]
  7. SYNTHROID [Concomitant]

REACTIONS (4)
  - RENAL FAILURE [None]
  - CARDIAC FAILURE CONGESTIVE [None]
  - CORONARY ARTERY DISEASE [None]
  - MYOCARDIAL INFARCTION [None]
